FAERS Safety Report 24771685 (Version 1)
Quarter: 2024Q4

REPORT INFORMATION
  Report Type: Spontaneous
  Country: TH (occurrence: TH)
  Receive Date: 20241224
  Receipt Date: 20241224
  Transmission Date: 20250114
  Serious: Yes (Hospitalization)
  Sender: BOEHRINGER INGELHEIM
  Company Number: TH-BoehringerIngelheim-2024-BI-069412

PATIENT
  Age: 65 Year
  Sex: Male

DRUGS (6)
  1. TIOTROPIUM [Suspect]
     Active Substance: TIOTROPIUM
     Indication: Chronic obstructive pulmonary disease
     Dosage: TIOTROPIUM HANDIHALER1 PUFF OD
     Dates: start: 202307
  2. FENOTEROL\IPRATROPIUM [Suspect]
     Active Substance: FENOTEROL\IPRATROPIUM
     Indication: Dyspnoea
     Dosage: FENOTEROL/IPRATROPIUM MDI 2 PUFF PRN FOR DYSPNEA Q 6 HOURS
     Dates: start: 202307
  3. Sal/FP accuhaler (50/250) [Concomitant]
     Indication: Chronic obstructive pulmonary disease
     Dosage: SAL/FP ACCUHALER(50/250) 1 PUFF BID
     Dates: start: 202307, end: 202308
  4. THEOPHYLLINE [Concomitant]
     Active Substance: THEOPHYLLINE
     Indication: Product used for unknown indication
     Dosage: THEOPHYLLINE 400 MG/DAY
  5. LOSARTAN [Concomitant]
     Active Substance: LOSARTAN
     Indication: Hypertension
     Dosage: LOSARTAN 50 MG/DAY
  6. PREDNISOLONE [Concomitant]
     Active Substance: PREDNISOLONE
     Indication: Product used for unknown indication
     Dosage: PREDNISOLONE 40 MG/DAY (5 DAYS)
     Dates: start: 202309

REACTIONS (7)
  - Dyspnoea [Recovered/Resolved]
  - Cough [Recovered/Resolved]
  - Wheezing [Recovered/Resolved]
  - Chronic obstructive pulmonary disease [Recovered/Resolved]
  - Respiratory failure [Recovered/Resolved]
  - Dyspnoea [Recovered/Resolved]
  - Dyspnoea [Recovered/Resolved]

NARRATIVE: CASE EVENT DATE: 20230801
